FAERS Safety Report 5647771-4 (Version None)
Quarter: 2008Q1

REPORT INFORMATION
  Report Type: 
  Country: None (occurrence: None)
  Receive Date: 20080303
  Receipt Date: 20080222
  Transmission Date: 20080703
  Serious: Yes (Hospitalization)
  Sender: FDA-Public Use
  Company Number: FR-ABBOTT-08P-056-0439672-00

PATIENT
  Age: 76 Year
  Sex: Female

DRUGS (1)
  1. DEPAKENE [Suspect]
     Indication: EPILEPSY
     Route: 048
     Dates: start: 20050809, end: 20060331

REACTIONS (8)
  - ABNORMAL BEHAVIOUR [None]
  - APHASIA [None]
  - COGNITIVE DISORDER [None]
  - DISORIENTATION [None]
  - DYSPHAGIA [None]
  - GAIT DISTURBANCE [None]
  - GRAND MAL CONVULSION [None]
  - LUNG DISORDER [None]
